FAERS Safety Report 7828781-5 (Version None)
Quarter: 2011Q4

REPORT INFORMATION
  Report Type: 
  Country: None (occurrence: None)
  Receive Date: 20111020
  Receipt Date: 20111014
  Transmission Date: 20120403
  Serious: Yes (Hospitalization)
  Sender: FDA-Public Use
  Company Number: FR-BAYER-2011-100129

PATIENT
  Age: 61 Year
  Sex: Female

DRUGS (5)
  1. FLUCONAZOLE [Suspect]
     Dosage: UNK
     Route: 042
     Dates: start: 20110718
  2. CIPROFLOXACIN [Suspect]
     Dosage: UNK
     Route: 042
     Dates: start: 20110718, end: 20110729
  3. VANCOMYCIN HCL [Suspect]
     Indication: ANTIBIOTIC THERAPY
     Dosage: UNK
     Route: 042
     Dates: start: 20110703, end: 20110729
  4. CLAFORAN [Suspect]
     Indication: ANTIBIOTIC THERAPY
     Dosage: UNK
     Route: 042
     Dates: start: 20110703, end: 20110729
  5. NEXIUM [Suspect]
     Dosage: UNK
     Route: 042
     Dates: start: 20110703, end: 20110808

REACTIONS (1)
  - DRUG RASH WITH EOSINOPHILIA AND SYSTEMIC SYMPTOMS [None]
